FAERS Safety Report 5105783-3 (Version None)
Quarter: 2006Q3

REPORT INFORMATION
  Report Type: 
  Country: None (occurrence: None)
  Receive Date: 20060915
  Receipt Date: 20060822
  Transmission Date: 20061208
  Serious: Yes (Other)
  Sender: FDA-Public Use
  Company Number: PL-ROCHE-460648

PATIENT
  Age: 33 Year
  Sex: Female
  Weight: 60 kg

DRUGS (2)
  1. ACCUTANE [Suspect]
     Route: 048
     Dates: start: 20060620
  2. ACCUTANE [Suspect]
     Dosage: STRENGH REPORTED AS 20 MG AND 10 MG.
     Route: 048
     Dates: start: 20060215, end: 20060619

REACTIONS (4)
  - BREAST ABSCESS [None]
  - BREAST DISCHARGE [None]
  - BREAST PAIN [None]
  - LYMPHADENOPATHY [None]
